FAERS Safety Report 9798962 (Version 1)
Quarter: 2014Q1

REPORT INFORMATION
  Report Type: Spontaneous
  Country: US (occurrence: US)
  Receive Date: 20140106
  Receipt Date: 20140106
  Transmission Date: 20141002
  Serious: Yes (Other)
  Sender: FDA-Public Use
  Company Number: PHEH2014US000453

PATIENT
  Sex: Female

DRUGS (6)
  1. DIOVAN HCT [Suspect]
     Dosage: UNK UKN, UNK
  2. LABETALOL [Concomitant]
  3. DIAZEPAM [Concomitant]
  4. TYLENOL [Concomitant]
  5. ZYRTEC [Concomitant]
  6. OSTEO-BI-FLEX [Concomitant]

REACTIONS (5)
  - Cardiac valve disease [Unknown]
  - Hypoacusis [Unknown]
  - Thinking abnormal [Unknown]
  - Back disorder [Unknown]
  - Balance disorder [Unknown]
